FAERS Safety Report 24348003 (Version 1)
Quarter: 2024Q3

REPORT INFORMATION
  Report Type: Spontaneous
  Country: FI (occurrence: FI)
  Receive Date: 20240923
  Receipt Date: 20240923
  Transmission Date: 20241017
  Serious: Yes (Other)
  Sender: NOVO NORDISK
  Company Number: None

PATIENT
  Age: 29 Year
  Sex: Female

DRUGS (2)
  1. VENLAFAXINE [Concomitant]
     Active Substance: VENLAFAXINE HYDROCHLORIDE
     Indication: Anxiety disorder
     Dosage: 112.5 MG (75MG+37,5MG)
     Route: 048
  2. RYBELSUS [Suspect]
     Active Substance: SEMAGLUTIDE
     Indication: Overweight
     Dosage: 3 MG
     Route: 048
     Dates: start: 20240823, end: 20240830

REACTIONS (5)
  - Self-injurious ideation [Recovered/Resolved]
  - Depressive symptom [Recovered/Resolved]
  - Thinking abnormal [Recovered/Resolved]
  - Panic reaction [Recovered/Resolved]
  - Off label use [Recovered/Resolved]

NARRATIVE: CASE EVENT DATE: 20240823
